FAERS Safety Report 8251333-2 (Version None)
Quarter: 2012Q2

REPORT INFORMATION
  Report Type: 
  Country: None (occurrence: None)
  Receive Date: 20120402
  Receipt Date: 20120329
  Transmission Date: 20120825
  Serious: Yes (Life-Threatening)
  Sender: FDA-Public Use
  Company Number: US-GLAXOSMITHKLINE-A0971567A

PATIENT
  Age: 51 Year
  Sex: Male

DRUGS (1)
  1. LOVAZA [Suspect]
     Indication: BLOOD TRIGLYCERIDES INCREASED
     Dosage: 2G TWICE PER DAY
     Route: 048
     Dates: start: 20120110, end: 20120309

REACTIONS (3)
  - WEIGHT INCREASED [None]
  - HEPATIC ENZYME INCREASED [None]
  - BLOOD TRIGLYCERIDES INCREASED [None]
